FAERS Safety Report 24888120 (Version 3)
Quarter: 2025Q2

REPORT INFORMATION
  Report Type: Report from Study
  Country: US (occurrence: US)
  Receive Date: 20250127
  Receipt Date: 20250408
  Transmission Date: 20250716
  Serious: No
  Sender: SUNOVION
  Company Number: US-SUMITOMO PHARMA SWITZERLAND GMBH-2025SPA000428

PATIENT

DRUGS (7)
  1. ORGOVYX [Suspect]
     Active Substance: RELUGOLIX
     Indication: Prostate cancer
     Route: 048
  2. ORGOVYX [Suspect]
     Active Substance: RELUGOLIX
     Dosage: 120 MG, QD
     Route: 048
     Dates: start: 202409
  3. NUBEQA [Concomitant]
     Active Substance: DAROLUTAMIDE
     Indication: Prostate cancer
     Dosage: 600 MG, BID
     Route: 048
  4. NUBEQA [Concomitant]
     Active Substance: DAROLUTAMIDE
     Dosage: 300 MG, QID
     Route: 065
  5. KEPPRA [Concomitant]
     Active Substance: LEVETIRACETAM
     Indication: Epilepsy
     Dosage: 500 MG, BID
     Route: 065
  6. DEXAMETHASONE [Concomitant]
     Active Substance: DEXAMETHASONE
     Indication: Prostate cancer
     Dosage: 4 MG, BID (2 TABS BEFORE CHEMO + 2 TABS BEFORE BED AFTER CHEMO)
     Route: 048
  7. Centrum minis men 50+ [Concomitant]
     Dosage: UNK, QD
     Route: 065

REACTIONS (5)
  - Onycholysis [Unknown]
  - Mood swings [Unknown]
  - Alopecia [Unknown]
  - Hot flush [Unknown]
  - Product use issue [Unknown]

NARRATIVE: CASE EVENT DATE: 20250201
